FAERS Safety Report 9638996 (Version 3)
Quarter: 2013Q4

REPORT INFORMATION
  Report Type: Report from Study
  Country: US (occurrence: US)
  Receive Date: 20131022
  Receipt Date: 20131112
  Transmission Date: 20140711
  Serious: Yes (Hospitalization, Other)
  Sender: FDA-Public Use
  Company Number: US-ACTELION-A-US2013-78058

PATIENT
  Age: 77 Year
  Sex: Female

DRUGS (3)
  1. TRACLEER [Suspect]
     Indication: PULMONARY ARTERIAL HYPERTENSION
     Dosage: 125 MG BID
     Route: 048
     Dates: start: 201310
  2. TRACLEER [Suspect]
     Dosage: 62.5 MG BID
     Route: 048
     Dates: start: 20111223
  3. COUMADIN [Concomitant]

REACTIONS (6)
  - Nasopharyngitis [Unknown]
  - Transfusion [Unknown]
  - Chest pain [Unknown]
  - Oedema peripheral [Unknown]
  - Gastrointestinal haemorrhage [Recovering/Resolving]
  - Anaemia [Recovering/Resolving]
